FAERS Safety Report 9262951 (Version 2)
Quarter: 2013Q2

REPORT INFORMATION
  Report Type: Spontaneous
  Country: US (occurrence: US)
  Receive Date: 20130430
  Receipt Date: 20130610
  Transmission Date: 20140414
  Serious: Yes (Other)
  Sender: FDA-Public Use
  Company Number: US-PFIZER INC-2013127308

PATIENT
  Sex: Male

DRUGS (2)
  1. GLUCOTROL [Suspect]
     Dosage: UNK
  2. GLUCOPHAGE [Suspect]
     Dosage: UNK

REACTIONS (1)
  - Gangrene [Unknown]
